FAERS Safety Report 18849697 (Version 1)
Quarter: 2021Q1

REPORT INFORMATION
  Report Type: Spontaneous
  Country: JP (occurrence: JP)
  Receive Date: 20210205
  Receipt Date: 20210205
  Transmission Date: 20210420
  Serious: Yes (Hospitalization)
  Sender: FDA-Public Use
  Company Number: JP-ROCHE-2763640

PATIENT
  Age: 31 Week

DRUGS (1)
  1. LUCENTIS [Suspect]
     Active Substance: RANIBIZUMAB
     Indication: RETINOPATHY OF PREMATURITY
     Route: 031

REACTIONS (4)
  - Retinal vascular disorder [Unknown]
  - Retinopathy of prematurity [Unknown]
  - Retinal neovascularisation [Unknown]
  - Disease progression [Unknown]
